FAERS Safety Report 8105765-3 (Version None)
Quarter: 2012Q1

REPORT INFORMATION
  Report Type: 
  Country: None (occurrence: None)
  Receive Date: 20120201
  Receipt Date: 20120123
  Transmission Date: 20120608
  Serious: Yes (Other)
  Sender: FDA-Public Use
  Company Number: US-ASTRAZENECA-2012SE01008

PATIENT
  Age: 67 Year
  Sex: Male
  Weight: 61.2 kg

DRUGS (8)
  1. PROAIR HFA [Concomitant]
  2. OMEPRAZOLE [Concomitant]
     Route: 048
  3. AZITARONITIN [Concomitant]
  4. SEROQUEL [Suspect]
     Indication: DEPRESSION
     Route: 048
  5. ATROPOLOL [Concomitant]
  6. LEXAPRO [Concomitant]
  7. ADVAIRE [Concomitant]
  8. ZANTAX [Concomitant]

REACTIONS (3)
  - EYE INJURY [None]
  - PNEUMONIA [None]
  - BRONCHITIS [None]
